FAERS Safety Report 8198115-8 (Version None)
Quarter: 2012Q1

REPORT INFORMATION
  Report Type: 
  Country: None (occurrence: None)
  Receive Date: 20120309
  Receipt Date: 20120229
  Transmission Date: 20120608
  Serious: Yes (Other)
  Sender: FDA-Public Use
  Company Number: MY-JNJFOC-20120301907

PATIENT
  Age: 4 Year
  Sex: Female

DRUGS (3)
  1. TOPAMAX [Suspect]
     Indication: PRODUCT USED FOR UNKNOWN INDICATION
     Route: 048
  2. LEVETIRACETAM [Concomitant]
     Route: 065
  3. TOPAMAX [Suspect]
     Route: 048

REACTIONS (2)
  - FEBRILE CONVULSION [None]
  - SALIVARY HYPERSECRETION [None]
